FAERS Safety Report 24983902 (Version 1)
Quarter: 2025Q1

REPORT INFORMATION
  Report Type: Report from Study
  Country: MX (occurrence: MX)
  Receive Date: 20250219
  Receipt Date: 20250219
  Transmission Date: 20250409
  Serious: Yes (Hospitalization, Other)
  Sender: ABBVIE
  Company Number: MX-ABBVIE-6139191

PATIENT
  Sex: Female
  Weight: 82 kg

DRUGS (2)
  1. VENCLEXTA [Suspect]
     Active Substance: VENETOCLAX
     Indication: Chronic lymphocytic leukaemia
     Dosage: FORM STRENGTH: 100 MG
     Route: 048
     Dates: start: 20230817
  2. VENCLEXTA [Suspect]
     Active Substance: VENETOCLAX
     Indication: Chronic lymphocytic leukaemia
     Dosage: 2 PILLS PER DAY
     Route: 048
     Dates: start: 2025

REACTIONS (1)
  - Cholelithiasis [Recovered/Resolved]
